FAERS Safety Report 5117229-X (Version None)
Quarter: 2006Q3

REPORT INFORMATION
  Report Type: 
  Country: None (occurrence: None)
  Receive Date: 20060926
  Receipt Date: 20060913
  Transmission Date: 20061208
  Serious: Yes (Other)
  Sender: FDA-Public Use
  Company Number: 2005113343

PATIENT
  Age: 59 Year
  Sex: Male
  Weight: 84.369 kg

DRUGS (6)
  1. VIAGRA [Suspect]
     Indication: ERECTILE DYSFUNCTION
     Dosage: 100 MG (50 MG), ORAL
     Route: 048
     Dates: start: 20040101
  2. FUROSEMIDE [Concomitant]
  3. METFORMIN HCL [Concomitant]
  4. GLIPIZIDE [Concomitant]
  5. POTASSIUM (POTASSIUM) [Concomitant]
  6. PRILOEC (OMEPRAZOLE) [Concomitant]

REACTIONS (2)
  - DIABETES MELLITUS [None]
  - DRUG EFFECT DECREASED [None]
